FAERS Safety Report 14544983 (Version 2)
Quarter: 2018Q3

REPORT INFORMATION
  Report Type: Spontaneous
  Country: FR (occurrence: FR)
  Receive Date: 20180217
  Receipt Date: 20180706
  Transmission Date: 20181010
  Serious: Yes (Death, Hospitalization)
  Sender: FDA-Public Use
  Company Number: FR-MYLANLABS-2018M1010379

PATIENT
  Age: 82 Year
  Sex: Female
  Weight: 81 kg

DRUGS (3)
  1. GENTAMICINE                        /00047101/ [Interacting]
     Active Substance: GENTAMICIN
     Indication: INFECTION
     Dosage: 354 MG, TOTAL
     Route: 042
     Dates: start: 20171117, end: 20171117
  2. VANCOMYCIN [Suspect]
     Active Substance: VANCOMYCIN
     Indication: INFECTION
     Dosage: DOSE DE CHARGE PUIS 400 MG/24H
     Route: 041
     Dates: start: 20171117, end: 20171121
  3. XENETIX [Interacting]
     Active Substance: IOBITRIDOL
     Indication: COMPUTERISED TOMOGRAM
     Dosage: 130 ML, TOTAL
     Route: 042
     Dates: start: 20171122, end: 20171122

REACTIONS (3)
  - Acute kidney injury [Recovered/Resolved]
  - Antibiotic level above therapeutic [Recovered/Resolved]
  - Drug interaction [Unknown]

NARRATIVE: CASE EVENT DATE: 20171119
